FAERS Safety Report 5574770-3 (Version None)
Quarter: 2007Q4

REPORT INFORMATION
  Report Type: 
  Country: None (occurrence: None)
  Receive Date: 20071226
  Receipt Date: 20071226
  Transmission Date: 20080405
  Serious: Yes (Hospitalization)
  Sender: FDA-Public Use
  Company Number: None

PATIENT
  Age: 32 Year
  Sex: Male

DRUGS (1)
  1. ATOMOXETINE [Suspect]
     Indication: ATTENTION DEFICIT/HYPERACTIVITY DISORDER
     Dosage: 80MG EVERY DAY PO
     Route: 048
     Dates: start: 20071004, end: 20071216

REACTIONS (3)
  - AGITATION [None]
  - NIGHTMARE [None]
  - SUICIDAL IDEATION [None]
